FAERS Safety Report 11480436 (Version 1)
Quarter: 2015Q3

REPORT INFORMATION
  Report Type: Spontaneous
  Country: US (occurrence: US)
  Receive Date: 20150909
  Receipt Date: 20150909
  Transmission Date: 20151125
  Serious: No
  Sender: FDA-Public Use
  Company Number: US-JAZZ-2014-US-012003

PATIENT
  Age: 59 Year
  Sex: Female

DRUGS (1)
  1. XYREM [Suspect]
     Active Substance: SODIUM OXYBATE
     Indication: SLEEP DISORDER
     Dosage: 2.25 G, BID
     Route: 048
     Dates: start: 20140916, end: 20140919

REACTIONS (8)
  - Illusion [Unknown]
  - Memory impairment [None]
  - Fear [Unknown]
  - Feeling abnormal [Unknown]
  - Pain [Unknown]
  - Product use issue [Unknown]
  - Morbid thoughts [Unknown]
  - Anxiety [Unknown]

NARRATIVE: CASE EVENT DATE: 20140916
